FAERS Safety Report 6256433-4 (Version None)
Quarter: 2009Q3

REPORT INFORMATION
  Report Type: 
  Country: None (occurrence: None)
  Receive Date: 20090701
  Receipt Date: 20090701
  Transmission Date: 20100115
  Serious: No
  Sender: FDA-Public Use
  Company Number: None

PATIENT
  Age: 87 Year
  Sex: Female
  Weight: 54.4316 kg

DRUGS (2)
  1. SEROQUEL [Suspect]
     Indication: PARANOIA
     Dosage: 1/2 OF 25 MG TWICE A DAY 25 MG AT BEDTIME
     Dates: start: 20090526, end: 20090529
  2. SEROQUEL [Suspect]
     Indication: VASCULAR DEMENTIA
     Dosage: 1/2 OF 25 MG TWICE A DAY 25 MG AT BEDTIME
     Dates: start: 20090526, end: 20090529

REACTIONS (5)
  - CEREBROVASCULAR ACCIDENT [None]
  - DYSKINESIA [None]
  - FEELING ABNORMAL [None]
  - GLOSSODYNIA [None]
  - TONGUE BITING [None]
